FAERS Safety Report 9112284 (Version 2)
Quarter: 2014Q1

REPORT INFORMATION
  Report Type: Spontaneous
  Country: US (occurrence: US)
  Receive Date: 20130219
  Receipt Date: 20140213
  Transmission Date: 20141002
  Serious: No
  Sender: FDA-Public Use
  Company Number: US-BRISTOL-MYERS SQUIBB COMPANY-17021122

PATIENT
  Age: 55 Year
  Sex: Female
  Weight: 57 kg

DRUGS (1)
  1. ORENCIA [Suspect]
     Indication: RHEUMATOID ARTHRITIS
     Dosage: 2ND INF CANCELLED,ONE DOSE ON 18SEP12, ONE DOSE ON OCT-2012
     Route: 042
     Dates: start: 20120918

REACTIONS (3)
  - Lymphadenopathy [Unknown]
  - Headache [Unknown]
  - Musculoskeletal stiffness [Unknown]
